FAERS Safety Report 20933626 (Version 3)
Quarter: 2022Q3

REPORT INFORMATION
  Report Type: Spontaneous
  Country: US (occurrence: US)
  Receive Date: 20220608
  Receipt Date: 20220726
  Transmission Date: 20221026
  Serious: Yes (Other)
  Sender: FDA-Public Use
  Company Number: US-PFIZER INC-202200806088

PATIENT
  Age: 40 Year
  Sex: Female
  Weight: 56.236 kg

DRUGS (2)
  1. PAXLOVID [Interacting]
     Active Substance: NIRMATRELVIR\RITONAVIR
     Indication: COVID-19 treatment
     Dosage: [PF-07321332 300 MG]/[RITONAVIR 100 MG]; 2X/DAY
     Route: 048
     Dates: start: 20220604, end: 2022
  2. HERBALS\TETRAHYDROCANNABINOL UNSPECIFIED [Interacting]
     Active Substance: HERBALS\TETRAHYDROCANNABINOL UNSPECIFIED
     Dosage: 5 MG

REACTIONS (9)
  - Drug interaction [Recovered/Resolved]
  - Blood potassium decreased [Recovered/Resolved]
  - Vomiting [Recovered/Resolved]
  - Diarrhoea [Recovered/Resolved]
  - Retching [Unknown]
  - Dizziness [Recovered/Resolved]
  - Yellow skin [Recovered/Resolved]
  - Pallor [Unknown]
  - Dysgeusia [Recovered/Resolved]

NARRATIVE: CASE EVENT DATE: 20220604
